FAERS Safety Report 7958039-5 (Version None)
Quarter: 2011Q4

REPORT INFORMATION
  Report Type: 
  Country: None (occurrence: None)
  Receive Date: 20111205
  Receipt Date: 20111128
  Transmission Date: 20120403
  Serious: Yes (Other)
  Sender: FDA-Public Use
  Company Number: US-ASTRAZENECA-2011SE67052

PATIENT
  Age: 63 Year
  Sex: Female

DRUGS (3)
  1. CRESTOR [Suspect]
     Route: 048
  2. SIMVASTATIN [Concomitant]
     Route: 065
  3. PRILOSEC [Suspect]
     Route: 048

REACTIONS (1)
  - CEREBROVASCULAR ACCIDENT [None]
